FAERS Safety Report 20616007 (Version 1)
Quarter: 2022Q1

REPORT INFORMATION
  Report Type: Spontaneous
  Country: US (occurrence: US)
  Receive Date: 20220321
  Receipt Date: 20220321
  Transmission Date: 20220423
  Serious: No
  Sender: FDA-Public Use
  Company Number: US-SANOFI-01017272

PATIENT
  Sex: Female

DRUGS (2)
  1. DUPIXENT [Suspect]
     Active Substance: DUPILUMAB
     Indication: Eczema
     Dosage: 300 MG, QOW
     Dates: start: 20211025
  2. DUPIXENT [Suspect]
     Active Substance: DUPILUMAB
     Indication: Topical steroid withdrawal reaction

REACTIONS (2)
  - Product temperature excursion issue [Unknown]
  - Product use in unapproved indication [Unknown]
